FAERS Safety Report 9033350 (Version 1)
Quarter: 2013Q1

REPORT INFORMATION
  Report Type: Spontaneous
  Country: US (occurrence: US)
  Receive Date: 20130128
  Receipt Date: 20130128
  Transmission Date: 20140127
  Serious: Yes (Hospitalization)
  Sender: FDA-Public Use
  Company Number: US-GILEAD-2013-0068398

PATIENT
  Sex: Female

DRUGS (3)
  1. LETAIRIS [Suspect]
     Indication: SYSTEMIC SCLEROSIS
     Dosage: 5 MG, QD
     Route: 048
     Dates: start: 20121212
  2. CAPTOPRIL [Suspect]
  3. ADCIRCA [Concomitant]

REACTIONS (3)
  - Dyspnoea [Unknown]
  - Hypersensitivity [Unknown]
  - Rash [Unknown]
